FAERS Safety Report 10065527 (Version 1)
Quarter: 2014Q2

REPORT INFORMATION
  Report Type: Spontaneous
  Country: DE (occurrence: DE)
  Receive Date: 20140408
  Receipt Date: 20140408
  Transmission Date: 20141212
  Serious: Yes (Other)
  Sender: FDA-Public Use
  Company Number: DE-ASTRAZENECA-2014SE22732

PATIENT
  Age: 23 Year
  Sex: Female

DRUGS (3)
  1. SEROQUEL RETARD [Suspect]
     Indication: BORDERLINE PERSONALITY DISORDER
     Route: 048
     Dates: start: 20120626, end: 20130401
  2. SERTRALINE [Suspect]
     Indication: BORDERLINE PERSONALITY DISORDER
     Route: 048
     Dates: start: 20120626, end: 20130401
  3. INSULIN [Concomitant]
     Indication: GESTATIONAL DIABETES

REACTIONS (2)
  - Exposure during pregnancy [Recovered/Resolved]
  - Gestational diabetes [Unknown]
